FAERS Safety Report 14271591 (Version 1)
Quarter: 2017Q4

REPORT INFORMATION
  Report Type: Spontaneous
  Country: ES (occurrence: ES)
  Receive Date: 20171211
  Receipt Date: 20171211
  Transmission Date: 20180321
  Serious: Yes (Other)
  Sender: FDA-Public Use
  Company Number: PHHY2017ES182471

PATIENT
  Age: 20 Year
  Sex: Female

DRUGS (2)
  1. IMATINIB [Suspect]
     Active Substance: IMATINIB
     Indication: DIFFUSE CUTANEOUS MASTOCYTOSIS
     Dosage: 400 MG, QD
     Route: 065
  2. IMATINIB [Suspect]
     Active Substance: IMATINIB
     Indication: SYSTEMIC MASTOCYTOSIS
     Dosage: 300 MG, QD
     Route: 065

REACTIONS (1)
  - Gastrointestinal disorder [Unknown]
